FAERS Safety Report 5871131-4 (Version None)
Quarter: 2008Q3

REPORT INFORMATION
  Report Type: 
  Country: None (occurrence: None)
  Receive Date: 20080904
  Receipt Date: 20080826
  Transmission Date: 20090109
  Serious: Yes (Other)
  Sender: FDA-Public Use
  Company Number: US-PFIZER INC-2008071534

PATIENT
  Sex: Female
  Weight: 72.272 kg

DRUGS (8)
  1. COLESTID [Suspect]
     Indication: BLOOD CHOLESTEROL INCREASED
     Dates: start: 20080801, end: 20080801
  2. VALIUM [Concomitant]
  3. DOXYCYCLINE [Concomitant]
  4. CODEINE SUL TAB [Concomitant]
  5. TRILAFON [Concomitant]
  6. IBUPROFEN [Concomitant]
     Dosage: FREQ:AS NEEDED
  7. BACLOFEN [Concomitant]
     Dosage: FREQ:AS NEEDED
  8. COLACE [Concomitant]

REACTIONS (4)
  - BEDRIDDEN [None]
  - DIZZINESS [None]
  - VERTIGO [None]
  - VISUAL IMPAIRMENT [None]
